FAERS Safety Report 7086349-5 (Version None)
Quarter: 2010Q4

REPORT INFORMATION
  Report Type: 
  Country: None (occurrence: None)
  Receive Date: 20101105
  Receipt Date: 20101101
  Transmission Date: 20110411
  Serious: Yes (Other)
  Sender: FDA-Public Use
  Company Number: DK-JNJCH-2010024897

PATIENT
  Sex: Male

DRUGS (4)
  1. NICORETTE INVISI 15MG PATCH [Suspect]
     Indication: SMOKING CESSATION THERAPY
     Route: 062
  2. NICORETTE INVISI 25MG PATCH [Suspect]
     Indication: SMOKING CESSATION THERAPY
     Route: 062
  3. ANTICOAGULANTS [Concomitant]
     Indication: ANTICOAGULANT THERAPY
     Dosage: TEXT:UNKNOWN
     Route: 065
  4. DRUG USED IN DIABETES [Concomitant]
     Indication: DIABETES MELLITUS
     Dosage: TEXT:UNKNOWN
     Route: 065

REACTIONS (4)
  - DIZZINESS [None]
  - MALAISE [None]
  - PRODUCT QUALITY ISSUE [None]
  - RENAL PAIN [None]
